FAERS Safety Report 6622098-2 (Version None)
Quarter: 2010Q1

REPORT INFORMATION
  Report Type: 
  Country: None (occurrence: None)
  Receive Date: 20100223
  Receipt Date: 20100107
  Transmission Date: 20100710
  Serious: No
  Sender: FDA-Public Use
  Company Number: 004176

PATIENT
  Sex: Female
  Weight: 59 kg

DRUGS (4)
  1. CIMZIA [Suspect]
     Dosage: (200 MG SUBCUTANEOUS)
     Route: 058
     Dates: start: 20090301
  2. XANAX [Concomitant]
  3. AMBIEN [Concomitant]
  4. VICODIN [Concomitant]

REACTIONS (1)
  - ARTHRALGIA [None]
